FAERS Safety Report 12851256 (Version 1)
Quarter: 2016Q4

REPORT INFORMATION
  Report Type: Spontaneous
  Country: US (occurrence: US)
  Receive Date: 20161015
  Receipt Date: 20161015
  Transmission Date: 20170207
  Serious: No
  Sender: FDA-Public Use
  Company Number: US-TEVA-694750ACC

PATIENT
  Age: 28 Year
  Sex: Female
  Weight: 69.01 kg

DRUGS (4)
  1. VENTOLIN [Concomitant]
     Active Substance: ALBUTEROL SULFATE
     Indication: ASTHMA
  2. ADVAIR DISKUS [Concomitant]
     Active Substance: FLUTICASONE PROPIONATE\SALMETEROL XINAFOATE
     Indication: ASTHMA
  3. DUET DHA PRENATAL [Concomitant]
  4. PARAGARD T 380A [Suspect]
     Active Substance: COPPER
     Indication: CONTRACEPTION
     Dates: start: 20150725, end: 20160727

REACTIONS (5)
  - Pelvic pain [Recovered/Resolved]
  - Vaginal haemorrhage [Recovered/Resolved]
  - Device expulsion [Recovered/Resolved]
  - Amenorrhoea [Recovered/Resolved]
  - Ovarian cyst [Recovered/Resolved]

NARRATIVE: CASE EVENT DATE: 20160611
